FAERS Safety Report 9859411 (Version 1)
Quarter: 2014Q1

REPORT INFORMATION
  Report Type: Spontaneous
  Country: FR (occurrence: None)
  Receive Date: 20140128
  Receipt Date: 20140128
  Transmission Date: 20141002
  Serious: Yes (Hospitalization)
  Sender: FDA-Public Use
  Company Number: 7262608

PATIENT
  Age: 64 Year
  Sex: Female

DRUGS (8)
  1. STAGID [Suspect]
     Indication: TYPE 2 DIABETES MELLITUS
     Dosage: 3 DF (1 DF, 3 IN 1 D), ORAL
     Route: 048
  2. HYDROCHLOROTHIAZIDE [Suspect]
     Indication: HYPERTENSION
     Route: 048
  3. LEVOTHYROX [Suspect]
     Indication: THYROIDITIS
     Dosage: 1 DF (1 DF, 1 IN 1 D)
     Route: 048
  4. ALLOPURINOL [Suspect]
     Indication: PRODUCT USED FOR UNKNOWN INDICATION
     Dosage: 1 DF (1 DF, 1 IN 1 D)
     Route: 048
     Dates: end: 20131224
  5. VALSARTAN [Suspect]
     Indication: HYPERTENSION
     Dosage: 160 MG (160 MG, 1 IN 1 D)
     Route: 048
     Dates: end: 20131224
  6. JANUVIA [Suspect]
     Indication: TYPE 2 DIABETES MELLITUS
     Dosage: 1 DF (1 DF, 1 IN 1 D)
     Route: 048
  7. VERAPAMIL [Suspect]
     Indication: HYPERTENSION
     Dosage: 240 MG (240 MG, 1 IN 1 D)
  8. DAFLON [Suspect]
     Indication: PRODUCT USED FOR UNKNOWN INDICATION
     Dosage: 1 DF (1 DF, 1 IN 1 D)
     Route: 048

REACTIONS (6)
  - Interstitial lung disease [None]
  - Weight decreased [None]
  - Eczema [None]
  - Arthralgia [None]
  - Alveolitis allergic [None]
  - Hyperventilation [None]
